FAERS Safety Report 24752382 (Version 1)
Quarter: 2024Q4

REPORT INFORMATION
  Report Type: Spontaneous
  Country: IT (occurrence: IT)
  Receive Date: 20241219
  Receipt Date: 20241219
  Transmission Date: 20250115
  Serious: Yes (Other)
  Sender: AUROBINDO
  Company Number: IT-PFIZER INC-2007107317

PATIENT
  Age: 36 Year
  Sex: Male

DRUGS (15)
  1. LORAZEPAM [Suspect]
     Active Substance: LORAZEPAM
     Indication: Depression
     Dosage: 2.5 MILLIGRAM, ONCE A DAY
     Route: 065
  2. LORAZEPAM [Suspect]
     Active Substance: LORAZEPAM
     Indication: Personality disorder
  3. LORAZEPAM [Suspect]
     Active Substance: LORAZEPAM
     Indication: Suicidal behaviour
  4. CITALOPRAM [Suspect]
     Active Substance: CITALOPRAM
     Indication: Personality disorder
     Dosage: 40 MILLIGRAM, ONCE A DAY
     Route: 065
  5. CITALOPRAM [Suspect]
     Active Substance: CITALOPRAM
     Indication: Suicidal behaviour
  6. CITALOPRAM [Suspect]
     Active Substance: CITALOPRAM
     Indication: Depression
  7. CLOZAPINE [Suspect]
     Active Substance: CLOZAPINE
     Indication: Depression
     Dosage: UNK
     Route: 065
  8. CLOZAPINE [Suspect]
     Active Substance: CLOZAPINE
     Indication: Personality disorder
  9. CLOZAPINE [Suspect]
     Active Substance: CLOZAPINE
     Indication: Suicidal behaviour
  10. CLOMIPRAMINE [Suspect]
     Active Substance: CLOMIPRAMINE
     Indication: Depression
     Dosage: 75 MILLIGRAM, ONCE A DAY
     Route: 065
  11. CLOMIPRAMINE [Suspect]
     Active Substance: CLOMIPRAMINE
     Indication: Personality disorder
  12. CLOMIPRAMINE [Suspect]
     Active Substance: CLOMIPRAMINE
     Indication: Suicidal behaviour
  13. LITHIUM CARBONATE [Suspect]
     Active Substance: LITHIUM CARBONATE
     Indication: Depression
     Dosage: 600 MILLIGRAM, ONCE A DAY
     Route: 065
  14. LITHIUM CARBONATE [Suspect]
     Active Substance: LITHIUM CARBONATE
     Indication: Personality disorder
  15. LITHIUM CARBONATE [Suspect]
     Active Substance: LITHIUM CARBONATE
     Indication: Suicidal behaviour

REACTIONS (1)
  - Hepatic enzyme increased [Recovered/Resolved]
